FAERS Safety Report 17917983 (Version 4)
Quarter: 2021Q1

REPORT INFORMATION
  Report Type: Report from Study
  Country: JP (occurrence: JP)
  Receive Date: 20200619
  Receipt Date: 20210113
  Transmission Date: 20210419
  Serious: Yes (Death, Hospitalization, Other)
  Sender: FDA-Public Use
  Company Number: JP-GILEAD-2020-0473218

PATIENT
  Age: 8 Week
  Sex: Male
  Weight: 3.94 kg

DRUGS (56)
  1. ADCIRCA [Suspect]
     Active Substance: TADALAFIL
     Indication: PULMONARY ARTERIAL HYPERTENSION
     Dosage: 1 MG/KG, 1D
     Route: 048
     Dates: start: 20171213, end: 20171217
  2. ADCIRCA [Suspect]
     Active Substance: TADALAFIL
     Dosage: UNK
     Route: 048
     Dates: start: 20180731, end: 20181110
  3. REVATIO [Suspect]
     Active Substance: SILDENAFIL CITRATE
     Dosage: 3.33 MG
     Route: 048
     Dates: start: 20180305, end: 20180731
  4. SPIRONOLACTONE. [Concomitant]
     Active Substance: SPIRONOLACTONE
     Dosage: 1.0 MG/KG, 1D
     Route: 048
  5. SULBACILLIN [Concomitant]
     Active Substance: AMPICILLIN SODIUM\SULBACTAM SODIUM
     Dosage: UNK
  6. SODIUM CHLORIDE. [Concomitant]
     Active Substance: SODIUM CHLORIDE
     Dosage: UNK
  7. AMBRISENTAN [Suspect]
     Active Substance: AMBRISENTAN
     Indication: PULMONARY HYPERTENSION
     Dosage: 0.1 MG/KG, 1D
     Route: 048
     Dates: start: 20171213, end: 20171215
  8. AMBRISENTAN [Suspect]
     Active Substance: AMBRISENTAN
     Dosage: UNK
     Route: 048
  9. EPOPROSTENOL SODIUM. [Suspect]
     Active Substance: EPOPROSTENOL SODIUM
     Route: 041
  10. NITRIC OXIDE. [Concomitant]
     Active Substance: NITRIC OXIDE
     Indication: PULMONARY HYPERTENSION
     Dosage: UNK
     Route: 055
  11. DOBUTAMINE [Concomitant]
     Active Substance: DOBUTAMINE HYDROCHLORIDE
     Dosage: UNK
  12. THYRADIN (LEVOTHYROXINE SODIUM) [Concomitant]
     Dosage: UNK
  13. REVATIO [Suspect]
     Active Substance: SILDENAFIL CITRATE
     Dosage: 2 MG, TID
     Route: 048
     Dates: start: 20180215, end: 20180225
  14. FUROSEMIDE. [Concomitant]
     Active Substance: FUROSEMIDE
     Dosage: 1 MG/KG, QD
     Route: 048
  15. MIDAZOLAM. [Concomitant]
     Active Substance: MIDAZOLAM
     Dosage: UNK
  16. EFFORTIL [Concomitant]
     Active Substance: ETILEFRINE HYDROCHLORIDE
     Dosage: UNK
  17. REVATIO [Suspect]
     Active Substance: SILDENAFIL CITRATE
     Indication: PULMONARY ARTERIAL HYPERTENSION
     Dosage: 1.33 MG, TID
     Route: 048
     Dates: start: 20171124, end: 20171213
  18. DOPAMIN [Concomitant]
     Dosage: UNK
  19. DOBUTAMINE [Concomitant]
     Active Substance: DOBUTAMINE HYDROCHLORIDE
     Dosage: UNK
  20. OLPRINONE HYDROCHLORIDE HYDRATE [Concomitant]
     Dosage: UNK
  21. FLUITRAN [Concomitant]
     Active Substance: TRICHLORMETHIAZIDE
     Dosage: UNK
  22. FAMOTIDINE. [Concomitant]
     Active Substance: FAMOTIDINE
     Dosage: UNK
  23. EPOPROSTENOL SODIUM. [Suspect]
     Active Substance: EPOPROSTENOL SODIUM
     Dosage: UNK
     Route: 041
  24. EPOPROSTENOL SODIUM. [Suspect]
     Active Substance: EPOPROSTENOL SODIUM
     Dosage: 10.9 NG/KG/MIN
     Route: 041
  25. NITRIC OXIDE. [Concomitant]
     Active Substance: NITRIC OXIDE
     Dosage: UNK
     Route: 055
  26. OLPRINONE HYDROCHLORIDE HYDRATE [Concomitant]
     Dosage: UNK
  27. E KEPPRA [Concomitant]
     Active Substance: LEVETIRACETAM
     Dosage: UNK
     Route: 048
     Dates: start: 20180910, end: 20181110
  28. URSO [Concomitant]
     Active Substance: URSODIOL
     Dosage: UNK
  29. URSO [Concomitant]
     Active Substance: URSODIOL
     Dosage: UNK
  30. ASPARA POTASSIUM [Concomitant]
     Active Substance: POTASSIUM ASPARTATE
     Dosage: UNK
  31. EPOPROSTENOL SODIUM. [Suspect]
     Active Substance: EPOPROSTENOL SODIUM
     Dosage: UNK
     Route: 041
     Dates: end: 20181111
  32. SPIRONOLACTONE. [Concomitant]
     Active Substance: SPIRONOLACTONE
     Dosage: 1 MG/KG, QD
     Route: 048
  33. FENTANYL. [Concomitant]
     Active Substance: FENTANYL
     Dosage: UNK
  34. FENTANYL. [Concomitant]
     Active Substance: FENTANYL
     Dosage: UNK
  35. FAMOTIDINE. [Concomitant]
     Active Substance: FAMOTIDINE
     Dosage: UNK
  36. ASPARA POTASSIUM [Concomitant]
     Active Substance: POTASSIUM ASPARTATE
     Dosage: UNK
  37. EPOPROSTENOL SODIUM. [Suspect]
     Active Substance: EPOPROSTENOL SODIUM
     Indication: PULMONARY HYPERTENSION
     Dosage: 2 NG/KG/MIN
     Route: 041
     Dates: start: 20171027
  38. EPOPROSTENOL SODIUM. [Suspect]
     Active Substance: EPOPROSTENOL SODIUM
     Dosage: 24.3 NG/KG/MIN
     Route: 041
  39. EPOPROSTENOL SODIUM. [Suspect]
     Active Substance: EPOPROSTENOL SODIUM
     Dosage: 10.9 NG/KG/MIN
     Route: 041
  40. XYZAL [Suspect]
     Active Substance: LEVOCETIRIZINE DIHYDROCHLORIDE
     Indication: PRODUCT USED FOR UNKNOWN INDICATION
     Dosage: UNK
     Route: 048
  41. OXYGEN. [Concomitant]
     Active Substance: OXYGEN
     Indication: PULMONARY HYPERTENSION
     Dosage: UNK
     Dates: start: 20171026, end: 20181110
  42. MIDAZOLAM. [Concomitant]
     Active Substance: MIDAZOLAM
     Dosage: UNK
  43. EFFORTIL [Concomitant]
     Active Substance: ETILEFRINE HYDROCHLORIDE
     Dosage: UNK
  44. ALBUMIN [Concomitant]
     Active Substance: ALBUMIN HUMAN
     Dosage: UNK
  45. ALBUMIN [Concomitant]
     Active Substance: ALBUMIN HUMAN
     Dosage: UNK
  46. SULBACILLIN [Concomitant]
     Active Substance: AMPICILLIN SODIUM\SULBACTAM SODIUM
     Dosage: UNK
  47. FLUITRAN [Concomitant]
     Active Substance: TRICHLORMETHIAZIDE
     Dosage: UNK
  48. MIYA?BM [Concomitant]
     Active Substance: CLOSTRIDIUM BUTYRICUM SPORES STRAIN M-55
     Dosage: UNK
  49. MIYA?BM [Concomitant]
     Active Substance: CLOSTRIDIUM BUTYRICUM SPORES STRAIN M-55
     Dosage: UNK
  50. REVATIO [Suspect]
     Active Substance: SILDENAFIL CITRATE
     Indication: PULMONARY HYPERTENSION
     Dosage: 0.67 MG, TID
     Route: 048
     Dates: start: 20180106, end: 20180207
  51. REVATIO [Suspect]
     Active Substance: SILDENAFIL CITRATE
     Dosage: 1.33 MG, TID
     Route: 048
     Dates: start: 20180208, end: 20180214
  52. REVATIO [Suspect]
     Active Substance: SILDENAFIL CITRATE
     Dosage: 2.67 MG, TID
     Route: 048
     Dates: start: 20180226, end: 20180304
  53. FUROSEMIDE. [Concomitant]
     Active Substance: FUROSEMIDE
     Dosage: 1.0 MG/KG, 1D
     Route: 048
  54. DOPAMIN [Concomitant]
     Dosage: UNK
  55. THYRADIN (LEVOTHYROXINE SODIUM) [Concomitant]
     Dosage: UNK
  56. SODIUM CHLORIDE. [Concomitant]
     Active Substance: SODIUM CHLORIDE
     Dosage: UNK

REACTIONS (14)
  - Ventricular enlargement [Fatal]
  - Pulmonary veno-occlusive disease [Fatal]
  - Pulmonary oedema [Fatal]
  - Pulmonary hypertension [Fatal]
  - Pulmonary arterial hypertension [Fatal]
  - Pulmonary vein stenosis [Unknown]
  - Oedema [Unknown]
  - Atrial enlargement [Fatal]
  - Epilepsy [Unknown]
  - Product use issue [Unknown]
  - Oliguria [Fatal]
  - Blood pressure decreased [Fatal]
  - Right ventricular failure [Fatal]
  - Respiratory disorder [Recovered/Resolved]

NARRATIVE: CASE EVENT DATE: 20171030
